FAERS Safety Report 19399494 (Version 2)
Quarter: 2022Q1

REPORT INFORMATION
  Report Type: Spontaneous
  Country: US (occurrence: US)
  Receive Date: 20210610
  Receipt Date: 20220217
  Transmission Date: 20220423
  Serious: Yes (Other)
  Sender: FDA-Public Use
  Company Number: US-GILEAD-2021-0534910

PATIENT
  Age: 53 Year
  Sex: Male
  Weight: 99.773 kg

DRUGS (29)
  1. TRUVADA [Suspect]
     Active Substance: EMTRICITABINE\TENOFOVIR DISOPROXIL FUMARATE
     Indication: HIV infection
     Dosage: UNK
     Route: 048
     Dates: start: 20100218, end: 20161020
  2. DESCOVY [Concomitant]
     Active Substance: EMTRICITABINE\TENOFOVIR ALAFENAMIDE FUMARATE
  3. NORVIR [Concomitant]
     Active Substance: RITONAVIR
  4. PREZCOBIX [Concomitant]
     Active Substance: COBICISTAT\DARUNAVIR ETHANOLATE
  5. PREZISTA [Concomitant]
     Active Substance: DARUNAVIR ETHANOLATE
  6. BETAMETHASONE [Concomitant]
     Active Substance: BETAMETHASONE
  7. BUPROPION [Concomitant]
     Active Substance: BUPROPION
  8. CHLORHEXIDINE [Concomitant]
     Active Substance: CHLORHEXIDINE
  9. CLOBETASOL PROPIONATE [Concomitant]
     Active Substance: CLOBETASOL PROPIONATE
  10. DEPO-TESTOSTERONE [Concomitant]
     Active Substance: TESTOSTERONE CYPIONATE
  11. DEXAMETHASONE [Concomitant]
     Active Substance: DEXAMETHASONE
  12. DULOXETINE [Concomitant]
     Active Substance: DULOXETINE
  13. FLUTICASONE [Concomitant]
     Active Substance: FLUTICASONE
  14. FOLIC ACID [Concomitant]
     Active Substance: FOLIC ACID
  15. KETOCONAZOLE [Concomitant]
     Active Substance: KETOCONAZOLE
  16. LAMOTRIGINE [Concomitant]
     Active Substance: LAMOTRIGINE
  17. MELOXICAM [Concomitant]
     Active Substance: MELOXICAM
  18. METHOTREXATE [Concomitant]
     Active Substance: METHOTREXATE
  19. MIRTAZAPINE [Concomitant]
     Active Substance: MIRTAZAPINE
  20. OMEPRAZOLE [Concomitant]
     Active Substance: OMEPRAZOLE
  21. VIAGRA [Concomitant]
     Active Substance: SILDENAFIL CITRATE
  22. TAMSULOSIN [Concomitant]
     Active Substance: TAMSULOSIN
  23. TESTOSTERONE [Concomitant]
     Active Substance: TESTOSTERONE
  24. TRAZODONE [Concomitant]
     Active Substance: TRAZODONE HYDROCHLORIDE
  25. TRIAMCINOLONE [Concomitant]
     Active Substance: TRIAMCINOLONE
  26. TROSPIUM [Concomitant]
     Active Substance: TROSPIUM
  27. VALACYCLOVIR [Concomitant]
     Active Substance: VALACYCLOVIR HYDROCHLORIDE
  28. VENLAFAXINE [Concomitant]
     Active Substance: VENLAFAXINE HYDROCHLORIDE
  29. AZELASTINE [Concomitant]
     Active Substance: AZELASTINE

REACTIONS (11)
  - Chronic kidney disease [Not Recovered/Not Resolved]
  - Emotional distress [Not Recovered/Not Resolved]
  - Anxiety [Not Recovered/Not Resolved]
  - Anhedonia [Not Recovered/Not Resolved]
  - Pain [Not Recovered/Not Resolved]
  - Renal impairment [Not Recovered/Not Resolved]
  - Asthenia [Not Recovered/Not Resolved]
  - Fatigue [Not Recovered/Not Resolved]
  - Hypertension [Not Recovered/Not Resolved]
  - Chromaturia [Unknown]
  - Dizziness [Unknown]

NARRATIVE: CASE EVENT DATE: 20120601
